FAERS Safety Report 14961752 (Version 1)
Quarter: 2020Q3

REPORT INFORMATION
  Report Type: Report from Study
  Country: IL (occurrence: IL)
  Receive Date: 20180601
  Receipt Date: 20180601
  Transmission Date: 20201105
  Serious: Yes (Other)
  Sender: FDA-Public Use
  Company Number: IL-SUN PHARMACEUTICAL INDUSTRIES LTD-2018RR-174285

PATIENT
  Age: 19 Year
  Sex: Female

DRUGS (5)
  1. MOXIFLOXACIN. [Suspect]
     Active Substance: MOXIFLOXACIN
     Indication: BACTERIAL INFECTION
     Route: 048
  2. AMIKACIN. [Suspect]
     Active Substance: AMIKACIN
     Indication: BACTERIAL INFECTION
     Dosage: UNK
     Route: 055
  3. AZITHROMYCIN ANHYDROUS. [Suspect]
     Active Substance: AZITHROMYCIN ANHYDROUS
     Indication: BACTERIAL INFECTION
     Dosage: DAILY ORAL TREATMENT
     Route: 048
  4. MINOCYCLINE [Suspect]
     Active Substance: MINOCYCLINE HYDROCHLORIDE
     Indication: BACTERIAL INFECTION
     Route: 048
  5. CLOFAZIMINE [Suspect]
     Active Substance: CLOFAZIMINE
     Indication: BACTERIAL INFECTION
     Dosage: UNK
     Route: 065

REACTIONS (1)
  - Drug ineffective [Unknown]
